FAERS Safety Report 9617097 (Version 1)
Quarter: 2013Q4

REPORT INFORMATION
  Report Type: Spontaneous
  Country: US (occurrence: US)
  Receive Date: 20131011
  Receipt Date: 20131011
  Transmission Date: 20140711
  Serious: No
  Sender: FDA-Public Use
  Company Number: US-TARO-2013P1004398

PATIENT
  Age: 1 Year
  Sex: Female
  Weight: 15.88 kg

DRUGS (1)
  1. LORATADINE SYRUP (LORATADINE ORAL SOLUTION USP) 5MG/5ML [Suspect]
     Indication: SNEEZING
     Route: 048
     Dates: start: 201208, end: 201209

REACTIONS (3)
  - Eye movement disorder [Recovered/Resolved]
  - Screaming [Recovered/Resolved]
  - Hypersensitivity [Recovered/Resolved]
